FAERS Safety Report 8042008-3 (Version None)
Quarter: 2012Q1

REPORT INFORMATION
  Report Type: 
  Country: None (occurrence: None)
  Receive Date: 20120112
  Receipt Date: 20120109
  Transmission Date: 20120608
  Serious: Yes (Hospitalization)
  Sender: FDA-Public Use
  Company Number: US-B.I. PHARMACEUTICALS,INC./RIDGEFIELD-2011-BP-27290BP

PATIENT
  Sex: Female

DRUGS (20)
  1. LIPITOR [Concomitant]
     Indication: BLOOD CHOLESTEROL INCREASED
     Route: 048
  2. CLONIDINE [Concomitant]
     Indication: HYPERTENSION
     Route: 061
  3. ALBUTEROL [Concomitant]
     Indication: ASTHMA
     Route: 055
  4. NOVOLOG INSULIN PEN [Concomitant]
     Indication: DIABETES MELLITUS
     Route: 058
  5. ADVAIR DISKUS 100/50 [Concomitant]
     Indication: ASTHMA
     Route: 055
  6. AMARYL [Concomitant]
     Indication: DIABETES MELLITUS
     Route: 048
  7. ONGLYZA [Concomitant]
     Indication: DIABETES MELLITUS
     Route: 048
  8. ALBUTEROL INHALER [Concomitant]
     Indication: ASTHMA
     Route: 055
  9. METOPROLOL SUCCINATE [Concomitant]
     Indication: HYPERTENSION
     Route: 048
  10. NIASPAN [Concomitant]
     Indication: BLOOD CHOLESTEROL INCREASED
     Route: 048
  11. LOVAZA [Concomitant]
     Indication: SUPPLEMENTATION THERAPY
  12. PROTONIX [Concomitant]
     Indication: GASTROOESOPHAGEAL REFLUX DISEASE
     Route: 048
  13. SPIRIVA [Concomitant]
     Indication: CHRONIC OBSTRUCTIVE PULMONARY DISEASE
     Route: 055
  14. PRADAXA [Suspect]
     Indication: ATRIAL FIBRILLATION
     Dosage: 300 MG
     Route: 048
     Dates: start: 20111116, end: 20111230
  15. PRADAXA [Suspect]
     Dosage: 150 MG
     Route: 048
     Dates: start: 20111230
  16. LASIX [Concomitant]
     Indication: HYPERTENSION
     Route: 048
  17. KLOR-CON [Concomitant]
     Indication: SUPPLEMENTATION THERAPY
     Route: 048
  18. ALLOPURINOL [Concomitant]
     Indication: GOUT
     Route: 048
  19. LANTUS [Concomitant]
     Indication: DIABETES MELLITUS
     Dosage: 27 U
     Route: 058
  20. AVAPRO [Concomitant]
     Indication: HYPERTENSION
     Route: 048

REACTIONS (8)
  - ASTHENIA [None]
  - FAECES HARD [None]
  - DECREASED APPETITE [None]
  - INTESTINAL POLYP HAEMORRHAGE [None]
  - HAEMATOCHEZIA [None]
  - ABDOMINAL PAIN UPPER [None]
  - OESOPHAGEAL HAEMORRHAGE [None]
  - OESOPHAGEAL POLYP [None]
